FAERS Safety Report 14367904 (Version 1)
Quarter: 2018Q1

REPORT INFORMATION
  Report Type: Spontaneous
  Country: US (occurrence: US)
  Receive Date: 20180108
  Receipt Date: 20180108
  Transmission Date: 20180509
  Serious: Yes (Hospitalization)
  Sender: FDA-Public Use
  Company Number: None

PATIENT
  Age: 6 Year
  Sex: Female

DRUGS (1)
  1. ORKAMBI [Suspect]
     Active Substance: IVACAFTOR\LUMACAFTOR

REACTIONS (6)
  - Therapy cessation [None]
  - Drug dose omission [None]
  - Gastrointestinal disorder [None]
  - Lung disorder [None]
  - Condition aggravated [None]
  - Constipation [None]

NARRATIVE: CASE EVENT DATE: 20170701
